FAERS Safety Report 8126296-0 (Version None)
Quarter: 2012Q1

REPORT INFORMATION
  Report Type: 
  Country: None (occurrence: None)
  Receive Date: 20120209
  Receipt Date: 20120131
  Transmission Date: 20120608
  Serious: Yes (Hospitalization)
  Sender: FDA-Public Use
  Company Number: US-TEVA-2011004343

PATIENT
  Sex: Female
  Weight: 108.8 kg

DRUGS (12)
  1. BENDAMUSTINE [Suspect]
     Indication: NON-HODGKIN'S LYMPHOMA
     Route: 048
  2. LORAZEPAM [Concomitant]
     Dates: start: 20110609
  3. LEVAMIR [Concomitant]
     Dates: start: 20080101
  4. DYAZIDE [Concomitant]
     Dates: start: 20060101
  5. CYCLOPHOSPHAMIDE [Suspect]
     Indication: NON-HODGKIN'S LYMPHOMA
     Route: 042
     Dates: start: 20110609
  6. RITUXIMAB [Suspect]
     Indication: NON-HODGKIN'S LYMPHOMA
     Route: 042
     Dates: start: 20110609
  7. VINCRISTINE [Suspect]
     Indication: NON-HODGKIN'S LYMPHOMA
     Route: 042
     Dates: start: 20110609
  8. METFORMIN HCL [Concomitant]
     Dates: start: 20010101
  9. PREDNISONE [Suspect]
     Indication: NON-HODGKIN'S LYMPHOMA
     Route: 048
     Dates: start: 20110609
  10. DOXORUBICIN HCL [Suspect]
     Indication: NON-HODGKIN'S LYMPHOMA
     Route: 042
     Dates: start: 20110609
  11. CITALOPRAM HYDROBROMIDE [Concomitant]
     Dates: start: 20060101
  12. INSULIN [Concomitant]

REACTIONS (4)
  - ELECTROCARDIOGRAM QT PROLONGED [None]
  - NEUTROPENIA [None]
  - BUNDLE BRANCH BLOCK LEFT [None]
  - NON-CARDIAC CHEST PAIN [None]
